FAERS Safety Report 9053441 (Version 1)
Quarter: 2013Q1

REPORT INFORMATION
  Report Type: Spontaneous
  Country: IT (occurrence: IT)
  Receive Date: 20130208
  Receipt Date: 20130208
  Transmission Date: 20140127
  Serious: Yes (Hospitalization)
  Sender: FDA-Public Use
  Company Number: PHHY2013IT010580

PATIENT
  Age: 13 Year
  Sex: Female

DRUGS (6)
  1. PANTOPRAZOLE [Suspect]
     Indication: INTENTIONAL OVERDOSE
     Route: 048
     Dates: start: 20130102, end: 20130102
  2. ALPRAZOLAM [Suspect]
     Indication: INTENTIONAL OVERDOSE
     Dosage: 5 MG, UNK
     Route: 048
     Dates: start: 20130102, end: 20130102
  3. ESOMEPRAZOLE [Suspect]
     Indication: INTENTIONAL OVERDOSE
     Route: 048
     Dates: start: 20130102, end: 20130102
  4. MORNIFLUMATE [Suspect]
     Indication: INTENTIONAL OVERDOSE
     Route: 048
     Dates: start: 20130102, end: 20130102
  5. SPORANOX [Suspect]
     Indication: INTENTIONAL OVERDOSE
     Route: 048
     Dates: start: 20130102, end: 20130102
  6. LAROXYL [Suspect]
     Indication: INTENTIONAL OVERDOSE
     Route: 048
     Dates: start: 20130102, end: 20130102

REACTIONS (2)
  - Aphasia [Recovered/Resolved]
  - Sopor [Recovered/Resolved]
